FAERS Safety Report 4303967-5 (Version None)
Quarter: 2004Q1

REPORT INFORMATION
  Report Type: 
  Country: None (occurrence: None)
  Receive Date: 20040225
  Receipt Date: 20040219
  Transmission Date: 20041129
  Serious: Yes (Hospitalization)
  Sender: FDA-Public Use
  Company Number: US-ROCHE-359443

PATIENT
  Sex: Male

DRUGS (2)
  1. ROCEPHIN [Suspect]
     Indication: OSTEOMYELITIS
     Route: 042
     Dates: start: 20040216, end: 20040218
  2. PAIN MEDICATION [Concomitant]

REACTIONS (2)
  - COMA [None]
  - LOSS OF CONSCIOUSNESS [None]
